FAERS Safety Report 7970434-7 (Version None)
Quarter: 2011Q4

REPORT INFORMATION
  Report Type: 
  Country: None (occurrence: None)
  Receive Date: 20111212
  Receipt Date: 20111206
  Transmission Date: 20120403
  Serious: No
  Sender: FDA-Public Use
  Company Number: PHHY2011AU107619

PATIENT
  Sex: Female

DRUGS (10)
  1. FLUTICASONE PROPIONATE/SALMETEROL [Concomitant]
     Dosage: UNK UKN, UNK
  2. SOMA [Concomitant]
     Dosage: UNK UKN, UNK
  3. LIPITROL [Concomitant]
     Dosage: UNK UKN, UNK
  4. PRISTIQ [Concomitant]
     Dosage: UNK UKN, UNK
  5. LASIX [Concomitant]
     Dosage: UNK UKN, UNK
  6. TASIGNA [Suspect]
     Indication: CHRONIC MYELOID LEUKAEMIA
     Dosage: 200 MG, BID
     Route: 048
     Dates: start: 20111204
  7. ACETAMINOPHEN [Concomitant]
     Dosage: UNK UKN, UNK
  8. DILTIAZEM HCL [Concomitant]
     Dosage: UNK UKN, UNK
  9. ALPRAZOLAM [Concomitant]
     Dosage: UNK UKN, UNK
  10. BUPRENORPHINE [Concomitant]
     Dosage: UNK UKN, UNK

REACTIONS (2)
  - PAIN IN EXTREMITY [None]
  - MUSCULOSKELETAL STIFFNESS [None]
